FAERS Safety Report 7437139-2 (Version None)
Quarter: 2011Q2

REPORT INFORMATION
  Report Type: 
  Country: None (occurrence: None)
  Receive Date: 20110426
  Receipt Date: 20110418
  Transmission Date: 20111010
  Serious: Yes (Death)
  Sender: FDA-Public Use
  Company Number: BR-MEDIMMUNE-MEDI-0013116

PATIENT
  Sex: Female

DRUGS (1)
  1. SYNAGIS [Suspect]
     Dates: start: 20100101

REACTIONS (2)
  - IMMUNODEFICIENCY [None]
  - PNEUMONIA [None]
